FAERS Safety Report 20009281 (Version 2)
Quarter: 2021Q4

REPORT INFORMATION
  Report Type: Report from Study
  Country: US (occurrence: US)
  Receive Date: 20211029
  Receipt Date: 20211217
  Transmission Date: 20220303
  Serious: Yes (Hospitalization, Other)
  Sender: FDA-Public Use
  Company Number: US-BRISTOL-MYERS SQUIBB COMPANY-BMS-2021-111415

PATIENT
  Age: 78 Year
  Sex: Female
  Weight: 62.132 kg

DRUGS (5)
  1. APIXABAN [Suspect]
     Active Substance: APIXABAN
     Indication: Cerebrovascular accident prophylaxis
     Dosage: 5 MILLIGRAM, BID
     Route: 048
     Dates: start: 20200411
  2. APIXABAN [Suspect]
     Active Substance: APIXABAN
     Indication: Tachycardia
  3. LEVOTHYROXINE [Concomitant]
     Active Substance: LEVOTHYROXINE
     Indication: Product used for unknown indication
     Dosage: 0.88 MILLIGRAM, QD, IN THE MORNING
     Route: 065
  4. FUROSEMIDE [Concomitant]
     Active Substance: FUROSEMIDE
     Indication: Product used for unknown indication
     Route: 065
  5. XOLAIR [Concomitant]
     Active Substance: OMALIZUMAB
     Indication: Asthma
     Dosage: UNK, QMO
     Route: 065

REACTIONS (5)
  - Heart rate decreased [Unknown]
  - Alopecia [Unknown]
  - Skin haemorrhage [Unknown]
  - Skin atrophy [Unknown]
  - Blood urine present [Unknown]

NARRATIVE: CASE EVENT DATE: 20210101
